FAERS Safety Report 5684089-8 (Version None)
Quarter: 2008Q1

REPORT INFORMATION
  Report Type: 
  Country: None (occurrence: None)
  Receive Date: 20080328
  Receipt Date: 20070305
  Transmission Date: 20080703
  Serious: No
  Sender: FDA-Public Use
  Company Number: US-AMGEN-KDL213625

PATIENT
  Sex: Female

DRUGS (3)
  1. NEULASTA [Suspect]
     Indication: CHEMOTHERAPY
     Route: 058
     Dates: start: 20070201
  2. UNSPECIFIED PAIN MEDICATION [Concomitant]
  3. LISINOPRIL [Concomitant]

REACTIONS (1)
  - DYSPNOEA [None]
